FAERS Safety Report 25393940 (Version 1)
Quarter: 2025Q2

REPORT INFORMATION
  Report Type: Spontaneous
  Country: US (occurrence: US)
  Receive Date: 20250604
  Receipt Date: 20250604
  Transmission Date: 20250717
  Serious: No
  Sender: ROCHE
  Company Number: US-ROCHE-10000297566

PATIENT
  Age: 53 Year
  Sex: Female
  Weight: 56.7 kg

DRUGS (21)
  1. RITUXAN [Suspect]
     Active Substance: RITUXIMAB
     Indication: Arthritis
     Route: 065
  2. VITAMIN D2 [Concomitant]
     Active Substance: ERGOCALCIFEROL
  3. ARMOUR THYROID [Concomitant]
     Active Substance: THYROID, PORCINE
  4. FAMOTIDINE [Concomitant]
     Active Substance: FAMOTIDINE
  5. DICLOFENAC SODIUM [Concomitant]
     Active Substance: DICLOFENAC SODIUM
  6. FOLIC ACID [Concomitant]
     Active Substance: FOLIC ACID
  7. SODIUM CHLORIDE [Concomitant]
     Active Substance: SODIUM CHLORIDE
  8. TADALAFIL [Concomitant]
     Active Substance: TADALAFIL
  9. LORAZEPAM [Concomitant]
     Active Substance: LORAZEPAM
  10. PROAIR HFA [Concomitant]
     Active Substance: ALBUTEROL SULFATE
  11. METHOTREXATE [Concomitant]
     Active Substance: METHOTREXATE
  12. URSODIOL [Concomitant]
     Active Substance: URSODIOL
  13. PREDNISONE [Concomitant]
     Active Substance: PREDNISONE
  14. ESCITALOPRAM OXALATE [Concomitant]
     Active Substance: ESCITALOPRAM OXALATE
  15. MUCINEX [Concomitant]
     Active Substance: GUAIFENESIN
  16. ADVAIR HFA [Concomitant]
     Active Substance: FLUTICASONE PROPIONATE\SALMETEROL XINAFOATE
  17. IMODIUM [Concomitant]
     Active Substance: LOPERAMIDE HYDROCHLORIDE
  18. LASIX [Concomitant]
     Active Substance: FUROSEMIDE
  19. CENTRUM ACTIVE [Concomitant]
  20. BENADRYL ALLERGY [Concomitant]
     Active Substance: DIPHENHYDRAMINE HYDROCHLORIDE
  21. REMODULIN [Concomitant]
     Active Substance: TREPROSTINIL
     Indication: Portal hypertension
     Route: 058
     Dates: start: 20250221

REACTIONS (1)
  - Pyrexia [Recovering/Resolving]

NARRATIVE: CASE EVENT DATE: 20250221
